FAERS Safety Report 6084775-4 (Version None)
Quarter: 2009Q1

REPORT INFORMATION
  Report Type: 
  Country: None (occurrence: None)
  Receive Date: 20090217
  Receipt Date: 20090209
  Transmission Date: 20090719
  Serious: Yes (Death, Hospitalization, Disabling)
  Sender: FDA-Public Use
  Company Number: PTA2008000022

PATIENT
  Age: 35 Year
  Sex: Female
  Weight: 115 kg

DRUGS (7)
  1. CARBOPLATIN [Suspect]
     Indication: ADENOCARCINOMA
  2. GEMCITABINE [Concomitant]
     Indication: ADENOCARCINOMA
  3. TARCEVA [Suspect]
     Indication: ADENOCARCINOMA
     Dosage: 50 MG, QD
     Dates: start: 20081015
  4. TAXOTERE [Suspect]
     Indication: ADENOCARCINOMA
  5. DEXAMETHASONE TAB [Concomitant]
  6. KEPPRA [Concomitant]
  7. VALPROATE SODIUM [Concomitant]

REACTIONS (4)
  - BILE DUCT CANCER [None]
  - CONVULSION [None]
  - METASTASES TO CENTRAL NERVOUS SYSTEM [None]
  - METASTASES TO LUNG [None]
